FAERS Safety Report 11777866 (Version 1)
Quarter: 2015Q4

REPORT INFORMATION
  Report Type: Spontaneous
  Country: AR (occurrence: AR)
  Receive Date: 20151125
  Receipt Date: 20151125
  Transmission Date: 20160304
  Serious: Yes (Death, Hospitalization)
  Sender: FDA-Public Use
  Company Number: AR-ASTRAZENECA-2015SF12328

PATIENT
  Age: 63 Year
  Sex: Female

DRUGS (9)
  1. CLONAZEPAM. [Concomitant]
     Active Substance: CLONAZEPAM
     Indication: PANIC DISORDER
  2. PREGABALIN. [Concomitant]
     Active Substance: PREGABALIN
     Indication: SEIZURE
  3. PREGABALIN. [Concomitant]
     Active Substance: PREGABALIN
     Indication: ANALGESIC THERAPY
  4. CLONAZEPAM. [Concomitant]
     Active Substance: CLONAZEPAM
     Indication: ANXIOLYTIC THERAPY
  5. METADONA [Concomitant]
     Active Substance: METHADONE HYDROCHLORIDE
     Indication: ANALGESIC THERAPY
  6. IRESSA [Suspect]
     Active Substance: GEFITINIB
     Route: 048
     Dates: start: 20140401
  7. OXYCODONE [Concomitant]
     Active Substance: OXYCODONE
     Indication: ANALGESIC THERAPY
  8. FOLIC ACID. [Concomitant]
     Active Substance: FOLIC ACID
  9. CLONAZEPAM. [Concomitant]
     Active Substance: CLONAZEPAM
     Indication: SEIZURE

REACTIONS (3)
  - Constipation [Fatal]
  - Dry skin [Fatal]
  - Disease progression [Fatal]

NARRATIVE: CASE EVENT DATE: 20140701
